FAERS Safety Report 22957542 (Version 8)
Quarter: 2023Q4

REPORT INFORMATION
  Report Type: Report from Study
  Country: IE (occurrence: IE)
  Receive Date: 20230919
  Receipt Date: 20231121
  Transmission Date: 20240109
  Serious: Yes (Hospitalization)
  Sender: FDA-Public Use
  Company Number: IE-SA-SAC20230914000659

PATIENT
  Age: 73 Year
  Sex: Male
  Weight: 61.8 kg

DRUGS (16)
  1. ISATUXIMAB [Suspect]
     Active Substance: ISATUXIMAB
     Indication: Plasma cell myeloma
     Dosage: 620 MG
     Route: 042
     Dates: start: 20230620, end: 20230620
  2. ISATUXIMAB [Suspect]
     Active Substance: ISATUXIMAB
     Dosage: 620 MG
     Route: 042
     Dates: start: 20230829, end: 20230829
  3. ISATUXIMAB [Suspect]
     Active Substance: ISATUXIMAB
     Dosage: 585 MG
     Route: 042
     Dates: start: 20231010, end: 20231010
  4. ISATUXIMAB [Suspect]
     Active Substance: ISATUXIMAB
     Dosage: 585 MG
     Dates: start: 20231107, end: 20231107
  5. BORTEZOMIB [Suspect]
     Active Substance: BORTEZOMIB
     Indication: Plasma cell myeloma
     Dosage: 2.19 MG
     Route: 058
     Dates: start: 20230620, end: 20230620
  6. BORTEZOMIB [Suspect]
     Active Substance: BORTEZOMIB
     Dosage: 2.19 MG
     Route: 058
     Dates: start: 20230901, end: 20230901
  7. BORTEZOMIB [Suspect]
     Active Substance: BORTEZOMIB
     Dosage: 2.13 MG
     Route: 058
     Dates: start: 20231013, end: 20231013
  8. BORTEZOMIB [Suspect]
     Active Substance: BORTEZOMIB
     Dosage: 2.13 MG
     Route: 058
     Dates: start: 20231114, end: 20231114
  9. LENALIDOMIDE [Suspect]
     Active Substance: LENALIDOMIDE
     Indication: Plasma cell myeloma
     Dosage: 25 MG
     Route: 048
     Dates: start: 20230620, end: 20230620
  10. LENALIDOMIDE [Suspect]
     Active Substance: LENALIDOMIDE
     Dosage: 25 MG
     Route: 048
     Dates: start: 20230904, end: 20230904
  11. LENALIDOMIDE [Suspect]
     Active Substance: LENALIDOMIDE
     Dosage: 25 MG
     Route: 048
     Dates: start: 20231016, end: 20231016
  12. DEXAMETHASONE [Suspect]
     Active Substance: DEXAMETHASONE
     Indication: Plasma cell myeloma
     Dosage: 20 MG
     Route: 042
     Dates: start: 20230620, end: 20230620
  13. DEXAMETHASONE [Suspect]
     Active Substance: DEXAMETHASONE
     Dosage: 20 MG
     Route: 042
     Dates: start: 20230829, end: 20230829
  14. DEXAMETHASONE [Suspect]
     Active Substance: DEXAMETHASONE
     Dosage: 20 MG (IV/ORAL)
     Dates: start: 20231014, end: 20231014
  15. LANSOPRAZOLE [Concomitant]
     Active Substance: LANSOPRAZOLE
     Dosage: 30 MG, QD
     Route: 048
     Dates: start: 20230623
  16. ENOXAPARIN [Concomitant]
     Active Substance: ENOXAPARIN
     Indication: Thrombosis prophylaxis
     Dosage: 40 MG, QD
     Route: 058
     Dates: start: 20231023, end: 20231030

REACTIONS (7)
  - Oedema peripheral [Recovered/Resolved with Sequelae]
  - Scrotal oedema [Recovered/Resolved with Sequelae]
  - Clostridium difficile colitis [Recovered/Resolved]
  - Spinal compression fracture [Recovered/Resolved with Sequelae]
  - Pneumonia [Recovered/Resolved with Sequelae]
  - Diarrhoea [Unknown]
  - Rectal haemorrhage [Unknown]

NARRATIVE: CASE EVENT DATE: 20230908
